FAERS Safety Report 7964441-8 (Version None)
Quarter: 2011Q4

REPORT INFORMATION
  Report Type: 
  Country: None (occurrence: None)
  Receive Date: 20111205
  Receipt Date: 20111123
  Transmission Date: 20120403
  Serious: Yes (Death)
  Sender: FDA-Public Use
  Company Number: CIP-2011-00895

PATIENT

DRUGS (4)
  1. DOCETAXEL [Suspect]
     Indication: NON-SMALL CELL LUNG CANCER
     Dosage: 75 MG/M2 OVER APPROXIMATELY ONE HOUR (DAY 1 OF 21-DAY CYCLE (MAX 6 CYCLES))
  2. CARBOPLATIN [Suspect]
     Indication: NON-SMALL CELL LUNG CANCER
     Dosage: AREA UNDER THE CURVE=5 MG/ML X MIN OVER 10 MINUTES (DAY 1 OF 21-DAY CYCLE (MAX 6 CYCLES)), INTRAVENO
     Route: 042
  3. DEXAMETHASONE [Concomitant]
  4. CARBOPLATIN [Suspect]
     Indication: NON-SMALL CELL LUNG CANCER
     Dosage: AREA UNDER THE CURVE=5 MG/ML X MIN OVER 10 MINUTES (DAY 1 OF 21-DAY CYCLE (MAX 6 CYCLES)), INTRAVENO
     Route: 042

REACTIONS (1)
  - CARDIAC ARREST [None]
